FAERS Safety Report 22826467 (Version 2)
Quarter: 2024Q1

REPORT INFORMATION
  Report Type: Report from Study
  Country: US (occurrence: US)
  Receive Date: 20230816
  Receipt Date: 20240118
  Transmission Date: 20240410
  Serious: Yes (Other)
  Sender: FDA-Public Use
  Company Number: US-ABBVIE-5366941

PATIENT
  Sex: Male
  Weight: 110 kg

DRUGS (17)
  1. DUOPA [Suspect]
     Active Substance: CARBIDOPA\LEVODOPA
     Indication: Product used for unknown indication
     Dosage: STRENGTH- 4.63 MG TO 20 MG/ML?TAKE 2000 ML EVERY DAY BY MISCELL FOR 28 DAYS
     Route: 050
     Dates: start: 20230417
  2. DUOPA [Suspect]
     Active Substance: CARBIDOPA\LEVODOPA
  3. GABAPENTIN [Concomitant]
     Active Substance: GABAPENTIN
     Indication: Product used for unknown indication
     Dosage: TIME INTERVAL: 0.33333333 DAYS: FORM STRENGTH: 300 MILLIGRAM?TAKE 1 CAPSULE BY MOUTH THREE TIMES ...
     Route: 048
  4. WARFARIN [Concomitant]
     Active Substance: WARFARIN
     Indication: Product used for unknown indication
     Dosage: FORM STRENGTH: 5 MILLIGRAM?TAKE 1 TABLET BY MOUTH ONCE A DAY
     Route: 048
  5. MIDODRINE [Concomitant]
     Active Substance: MIDODRINE
     Indication: Product used for unknown indication
     Dosage: TIME INTERVAL: 0.33333333 DAYS: FORM STRENGTH: 10 MILLIGRAM?TAKE ONE TABLET BY MOUTH  TWO TO THRE...
     Route: 048
  6. FLUDROCORTISONE [Concomitant]
     Active Substance: FLUDROCORTISONE
     Indication: Product used for unknown indication
     Dosage: FORM STRENGTH: 0.1 MG?TAKE TABLET BY MOUTH ONE TIME DAILY
     Route: 048
  7. SINEMET [Concomitant]
     Active Substance: CARBIDOPA\LEVODOPA
     Indication: Product used for unknown indication
  8. LEXAPRO [Concomitant]
     Active Substance: ESCITALOPRAM OXALATE
     Indication: Product used for unknown indication
     Dosage: FORM STRENGTH: 20 MILLIGRAM
  9. ENTACAPONE [Concomitant]
     Active Substance: ENTACAPONE
     Indication: Product used for unknown indication
     Dosage: FORM STRENGTH: 200 MILLIGRAM?TAKE ONE TABLET BY MOUTH WITH CARBIDOPA/LEVODOPA SEVEN TIMES A DAY
     Route: 048
  10. AMANTADINE HYDROCHLORIDE [Concomitant]
     Active Substance: AMANTADINE HYDROCHLORIDE
     Indication: Product used for unknown indication
     Dosage: FORM STRENGTH: 100 MILLIGRAM?TAKE ONE CAPSULE BY MOUTH TWICE DAILY
     Route: 048
  11. CARBIDOPA\LEVODOPA [Concomitant]
     Active Substance: CARBIDOPA\LEVODOPA
     Indication: Product used for unknown indication
     Dosage: CARBIDOPA 25 MG?LEVODOPA 250 MG ?TAKE ONE TABLET AT 8 AM BY MOUTH AND THEN EVERY THREE HOURS BUT ...
     Route: 048
  12. CLOTRIMAZOLE [Concomitant]
     Active Substance: CLOTRIMAZOLE
     Indication: Product used for unknown indication
     Dosage: TIME INTERVAL: AS NECESSARY: FORM STRENGHT-1 %
     Route: 061
  13. ESCITALOPRAM [Concomitant]
     Active Substance: ESCITALOPRAM OXALATE
     Indication: Product used for unknown indication
     Dosage: FORM STRNGHT-20 MG
     Route: 048
  14. ACETAMINOPHEN\HYDROCODONE [Concomitant]
     Active Substance: ACETAMINOPHEN\HYDROCODONE
     Indication: Pain
     Dosage: FORM STRENGTH-10 MG/325 MG?TAKE 1 TABLET BY MOUTH FOUR TIMES A DAY AS NEEDED FOR PAIN?1-2 EVERY 4...
     Route: 048
  15. KETOCONAZOLE [Concomitant]
     Active Substance: KETOCONAZOLE
     Indication: Rash
     Dosage: FORM STRENGTH- 2 %?APPLY 0.5 GRAM TO FACE TWICE A DAY
     Route: 061
  16. NARCAN [Concomitant]
     Active Substance: NALOXONE HYDROCHLORIDE
     Indication: Product used for unknown indication
     Dosage: ADMINISTER 1 SPRAY BY NASAL ROUTE AS NEEDED FOR DECREASED RESPONS ?STRENGHT-4 MG
     Route: 045
  17. TERBINAFINE HYDROCHLORIDE [Concomitant]
     Active Substance: TERBINAFINE HYDROCHLORIDE
     Indication: Product used for unknown indication
     Dosage: TAKE ONE TABLET BY MOUTH ONE TIME DAILY ?FORM STRENGHT-250 MG
     Route: 048

REACTIONS (42)
  - Gastric bypass [Unknown]
  - Therapeutic response shortened [Unknown]
  - Dyskinesia [Unknown]
  - On and off phenomenon [Unknown]
  - Dystonia [Unknown]
  - Illusion [Unknown]
  - Psychotic disorder [Unknown]
  - Depressed mood [Unknown]
  - Anxiety [Unknown]
  - Apathy [Unknown]
  - Somnolence [Unknown]
  - Bradykinesia [Unknown]
  - Muscle rigidity [Unknown]
  - Tremor [Unknown]
  - Constipation [Unknown]
  - Discomfort [Unknown]
  - Pain [Unknown]
  - Gait disturbance [Unknown]
  - Fall [Unknown]
  - Insomnia [Unknown]
  - Loss of personal independence in daily activities [Unknown]
  - Mastication disorder [Unknown]
  - Drooling [Unknown]
  - Speech disorder [Unknown]
  - Pulmonary embolism [Unknown]
  - Deep vein thrombosis [Unknown]
  - Syncope [Unknown]
  - Brain fog [Unknown]
  - Sensory disturbance [Unknown]
  - Dysphagia [Unknown]
  - Freezing phenomenon [Unknown]
  - Walking aid user [Unknown]
  - Balance disorder [Unknown]
  - Unevaluable event [Unknown]
  - Pollakiuria [Unknown]
  - Cognitive disorder [Unknown]
  - Hallucination [Unknown]
  - Dopamine dysregulation syndrome [Unknown]
  - Decreased interest [Unknown]
  - Depression [Unknown]
  - Movement disorder [Unknown]
  - Hypotension [Unknown]
